FAERS Safety Report 21009893 (Version 1)
Quarter: 2022Q2

REPORT INFORMATION
  Report Type: Spontaneous
  Country: US (occurrence: None)
  Receive Date: 20220626
  Receipt Date: 20220626
  Transmission Date: 20220721
  Serious: Yes (Other)
  Sender: FDA-Public Use
  Company Number: None

PATIENT
  Age: 40 Year
  Sex: Female
  Weight: 85.5 kg

DRUGS (1)
  1. CEPHALEXIN [Suspect]
     Active Substance: CEPHALEXIN
     Indication: Localised infection
     Dosage: FREQUENCY : EVERY 12 HOURS;?
     Route: 048

REACTIONS (3)
  - Vomiting [None]
  - Blood glucose abnormal [None]
  - Urine ketone body present [None]

NARRATIVE: CASE EVENT DATE: 20220623
